FAERS Safety Report 9511236 (Version 1)
Quarter: 2013Q1

REPORT INFORMATION
  Report Type: Spontaneous
  Country: US (occurrence: None)
  Receive Date: 20130305
  Receipt Date: 20130305
  Transmission Date: 20140127
  Serious: Yes (Other)
  Sender: FDA-Public Use
  Company Number: 163-21880-11102170

PATIENT
  Age: 64 Year
  Sex: Male

DRUGS (2)
  1. REVLIMID (LENALIDOMIDE) (15 MILLIGRAM, CAPSULES) [Suspect]
     Indication: PLASMA CELL MYELOMA
     Dosage: 15 MG, 21 IN 21 D, PO
     Dates: start: 200909, end: 2010
  2. THROMBOSIS PROPHYLAXIS [Concomitant]

REACTIONS (3)
  - Fatigue [None]
  - Platelet count decreased [None]
  - Upper respiratory tract infection [None]
